FAERS Safety Report 7986935-1 (Version None)
Quarter: 2011Q4

REPORT INFORMATION
  Report Type: 
  Country: None (occurrence: None)
  Receive Date: 20111216
  Receipt Date: 20110909
  Transmission Date: 20120403
  Serious: Yes (Hospitalization)
  Sender: FDA-Public Use
  Company Number: US-BRISTOL-MYERS SQUIBB COMPANY-16048019

PATIENT
  Age: 12 Year
  Sex: Female
  Weight: 40 kg

DRUGS (3)
  1. ADDERALL 5 [Concomitant]
  2. ZOLOFT [Concomitant]
  3. ABILIFY [Suspect]
     Dosage: STARTED ON LOW DOSE,JUN11 INTERRUPTED,RESTARTED ON 17JUN11,2 MG/DAY FOR 4 DAYS THEN 2 MG TWICE DAILY
     Dates: end: 20110601

REACTIONS (6)
  - ONYCHOMADESIS [None]
  - ADVERSE EVENT [None]
  - WEIGHT INCREASED [None]
  - VITAMIN D DEFICIENCY [None]
  - HAND-FOOT-AND-MOUTH DISEASE [None]
  - DRUG INEFFECTIVE [None]
